FAERS Safety Report 4449756-2 (Version None)
Quarter: 2004Q3

REPORT INFORMATION
  Report Type: 
  Country: None (occurrence: None)
  Receive Date: 20040913
  Receipt Date: 20040830
  Transmission Date: 20050211
  Serious: Yes (Hospitalization)
  Sender: FDA-Public Use
  Company Number: MPS1-10276

PATIENT
  Age: 14 Month
  Sex: Male
  Weight: 10.2 kg

DRUGS (1)
  1. ALDURAZYME [Suspect]
     Indication: MUCOPOLYSACCHARIDOSIS I
     Dosage: 5.8 MG QWK IV
     Route: 042
     Dates: start: 20031201

REACTIONS (5)
  - BACTERAEMIA [None]
  - ENTEROCOCCAL INFECTION [None]
  - PLATELET COUNT DECREASED [None]
  - PNEUMONIA KLEBSIELLA [None]
  - URTICARIA [None]
